FAERS Safety Report 19557877 (Version 3)
Quarter: 2022Q4

REPORT INFORMATION
  Report Type: Report from Study
  Country: JP (occurrence: JP)
  Receive Date: 20210715
  Receipt Date: 20221006
  Transmission Date: 20230113
  Serious: Yes (Death)
  Sender: FDA-Public Use
  Company Number: JP-ELI_LILLY_AND_COMPANY-JP202107004916

PATIENT
  Age: 79 Year
  Sex: Male

DRUGS (2)
  1. TALTZ [Suspect]
     Active Substance: IXEKIZUMAB
     Indication: Psoriasis
     Dosage: 160 MG, SINGLE
     Route: 058
     Dates: start: 20181001, end: 20181001
  2. TALTZ [Suspect]
     Active Substance: IXEKIZUMAB
     Dosage: 80 MG, CYCLICAL
     Route: 058
     Dates: start: 20181015, end: 20210528

REACTIONS (3)
  - Lung neoplasm malignant [Fatal]
  - Metastases to kidney [Fatal]
  - Metastases to bone [Fatal]

NARRATIVE: CASE EVENT DATE: 20210519
